FAERS Safety Report 8413193-6 (Version None)
Quarter: 2012Q2

REPORT INFORMATION
  Report Type: 
  Country: None (occurrence: None)
  Receive Date: 20120605
  Receipt Date: 20120529
  Transmission Date: 20120825
  Serious: Yes (Hospitalization)
  Sender: FDA-Public Use
  Company Number: CA-ABBOTT-12P-028-0933020-00

PATIENT
  Sex: Female
  Weight: 38.363 kg

DRUGS (1)
  1. HUMIRA [Suspect]
     Indication: CROHN'S DISEASE
     Route: 058
     Dates: start: 20110503, end: 20120401

REACTIONS (2)
  - INTESTINAL OBSTRUCTION [None]
  - CLOSTRIDIUM DIFFICILE COLITIS [None]
